FAERS Safety Report 4321838-5 (Version None)
Quarter: 2004Q1

REPORT INFORMATION
  Report Type: 
  Country: None (occurrence: None)
  Receive Date: 20040322
  Receipt Date: 20031224
  Transmission Date: 20041129
  Serious: Yes (Death, Hospitalization)
  Sender: FDA-Public Use
  Company Number: OXYA20030007

PATIENT
  Age: 16 Year
  Sex: Female

DRUGS (2)
  1. OXYCODONE AND ACETAMINOPHEN [Suspect]
     Dosage: PO
     Route: 048
     Dates: start: 20020101, end: 20020101
  2. ACETAMINOPHEN AND HYDROCODONE BITARTRATE [Suspect]
     Dosage: PO
     Route: 048

REACTIONS (3)
  - CARDIAC ARREST [None]
  - COMPLETED SUICIDE [None]
  - INTENTIONAL OVERDOSE [None]
